FAERS Safety Report 17847560 (Version 2)
Quarter: 2020Q2

REPORT INFORMATION
  Report Type: Spontaneous
  Country: ES (occurrence: ES)
  Receive Date: 20200601
  Receipt Date: 20200608
  Transmission Date: 20200714
  Serious: Yes (Other)
  Sender: FDA-Public Use
  Company Number: ES-ASTELLAS-2020US018268

PATIENT
  Age: 39 Year
  Sex: Male

DRUGS (6)
  1. VESOMNI [Suspect]
     Active Substance: SOLIFENACIN\TAMSULOSIN
     Dosage: 1 DF, ONCE DAILY (1 TABLET IN THE MORNING)
     Route: 065
  2. VESOMNI [Suspect]
     Active Substance: SOLIFENACIN\TAMSULOSIN
     Dosage: UNK UNK, UNKNOWN FREQ.
     Route: 065
  3. BETMIGA [Suspect]
     Active Substance: MIRABEGRON
     Indication: HYPERTONIC BLADDER
     Dosage: 1 DF, ONCE DAILY (1 TABLET AT DINNER)
     Route: 065
  4. BETMIGA [Suspect]
     Active Substance: MIRABEGRON
     Dosage: UNK UNK, UNKNOWN FREQ.
     Route: 065
  5. BETMIGA [Suspect]
     Active Substance: MIRABEGRON
     Dosage: 1 DF, ONCE DAILY (1 TABLET AT DINNER)
     Route: 065
  6. VESOMNI [Suspect]
     Active Substance: SOLIFENACIN\TAMSULOSIN
     Indication: HYPERTONIC BLADDER
     Dosage: 1 DF, ONCE DAILY (1 TABLET IN THE MORNING)
     Route: 065

REACTIONS (5)
  - Product use in unapproved indication [Unknown]
  - Therapeutic product effect incomplete [Unknown]
  - Constipation [Not Recovered/Not Resolved]
  - Chest pain [Unknown]
  - Retrograde ejaculation [Not Recovered/Not Resolved]
